FAERS Safety Report 8432732-2 (Version None)
Quarter: 2012Q2

REPORT INFORMATION
  Report Type: 
  Country: None (occurrence: None)
  Receive Date: 20120323
  Receipt Date: 20111207
  Transmission Date: 20120825
  Serious: Yes (Other)
  Sender: FDA-Public Use
  Company Number: 163-21880-11060636

PATIENT
  Age: 66 Year
  Sex: Male
  Weight: 65.7716 kg

DRUGS (8)
  1. REVLIMID [Suspect]
     Indication: MULTIPLE MYELOMA
     Dosage: 25 MG, 1 IN 1 D, PO ; 25 MG, X14, PO
     Route: 048
     Dates: start: 20110214
  2. REVLIMID [Suspect]
     Indication: MULTIPLE MYELOMA
     Dosage: 25 MG, 1 IN 1 D, PO ; 25 MG, X14, PO
     Route: 048
     Dates: start: 20111201
  3. LORTAB [Concomitant]
  4. BONE BUILDER (ALL OTHER THERAPEUTIC PRODUCTS) [Concomitant]
  5. FE (TEGAFUR) [Concomitant]
  6. UNKNOWN FOR DECREASED WBC(ALL OTHER THERAPEUTIC PRODUCTS) [Concomitant]
  7. ENALAPRIL MALEATE [Concomitant]
  8. OMEPRAZOLE [Concomitant]

REACTIONS (1)
  - FULL BLOOD COUNT DECREASED [None]
